FAERS Safety Report 15421386 (Version 2)
Quarter: 2018Q3

REPORT INFORMATION
  Report Type: Spontaneous
  Country: US (occurrence: US)
  Receive Date: 20180924
  Receipt Date: 20180925
  Transmission Date: 20181010
  Serious: Yes (Other)
  Sender: FDA-Public Use
  Company Number: US-CELGENEUS-USA-20180905967

PATIENT
  Age: 81 Year
  Sex: Male

DRUGS (1)
  1. ISTODAX [Suspect]
     Active Substance: ROMIDEPSIN
     Indication: MYCOSIS FUNGOIDES
     Route: 042
     Dates: start: 201808, end: 20180825

REACTIONS (2)
  - Cellulitis [Not Recovered/Not Resolved]
  - Glomerulonephritis proliferative [Not Recovered/Not Resolved]

NARRATIVE: CASE EVENT DATE: 20180825
